FAERS Safety Report 18988882 (Version 4)
Quarter: 2021Q2

REPORT INFORMATION
  Report Type: Spontaneous
  Country: JP (occurrence: JP)
  Receive Date: 20210309
  Receipt Date: 20210416
  Transmission Date: 20210717
  Serious: Yes (Death, Hospitalization)
  Sender: FDA-Public Use
  Company Number: JP-JNJFOC-20210313611

PATIENT
  Age: 49 Year
  Sex: Male

DRUGS (8)
  1. XEPLION [Suspect]
     Active Substance: PALIPERIDONE PALMITATE
     Dosage: DOSE UNKNOWN
     Route: 030
     Dates: start: 2020, end: 2020
  2. XEPLION [Suspect]
     Active Substance: PALIPERIDONE PALMITATE
     Route: 030
     Dates: start: 20201024, end: 20201024
  3. XEPLION [Suspect]
     Active Substance: PALIPERIDONE PALMITATE
     Indication: INTELLECTUAL DISABILITY
     Route: 030
     Dates: start: 20200229, end: 20200229
  4. XEPLION [Suspect]
     Active Substance: PALIPERIDONE PALMITATE
     Indication: IRRITABILITY
     Route: 030
     Dates: start: 20200314, end: 20200314
  5. XEPLION [Suspect]
     Active Substance: PALIPERIDONE PALMITATE
     Route: 030
     Dates: start: 20200411, end: 20200411
  6. RISPERDAL [Suspect]
     Active Substance: RISPERIDONE
     Indication: INTELLECTUAL DISABILITY
     Dosage: RISPERIDONE:1MG
     Route: 048
     Dates: start: 20090606, end: 20201109
  7. RISPERDAL [Suspect]
     Active Substance: RISPERIDONE
     Indication: IRRITABILITY
  8. XEPLION [Suspect]
     Active Substance: PALIPERIDONE PALMITATE
     Route: 030
     Dates: start: 20200509, end: 20200509

REACTIONS (6)
  - Pneumonia aspiration [Fatal]
  - Diabetes mellitus [Recovering/Resolving]
  - Extrapyramidal disorder [Unknown]
  - Off label use [Unknown]
  - Inappropriate schedule of product administration [Unknown]
  - Product use in unapproved indication [Unknown]

NARRATIVE: CASE EVENT DATE: 20090606
